FAERS Safety Report 6328626-9 (Version None)
Quarter: 2009Q3

REPORT INFORMATION
  Report Type: 
  Country: None (occurrence: None)
  Receive Date: 20090824
  Receipt Date: 20090824
  Transmission Date: 20100115
  Serious: Yes (Hospitalization)
  Sender: FDA-Public Use
  Company Number: None

PATIENT
  Sex: Male
  Weight: 115 kg

DRUGS (8)
  1. CYCLOPHOSPHAMIDE [Suspect]
     Dosage: 2200 MG
  2. DEXAMETHASONE [Suspect]
     Dosage: 110 MG
  3. DOXORUBICIN HCL [Suspect]
     Dosage: 112 MG
  4. G-CSF (FILGRASTIM, AMGEN) [Suspect]
     Dosage: 5130 MCG
  5. LEUCOVORIN CALCIUM [Suspect]
     Dosage: 245 MG
  6. METHOTREXATE [Suspect]
     Dosage: 3355 MG
  7. RITUXIMAB (MOAB C2B8 ANTI CD20, CHIMERIC) [Suspect]
     Dosage: 800 MG
  8. VINCRISTINE SULFATE [Suspect]
     Dosage: 1 MG

REACTIONS (32)
  - AGGRESSION [None]
  - BACK PAIN [None]
  - BALANCE DISORDER [None]
  - CARDIOMYOPATHY [None]
  - COGNITIVE DISORDER [None]
  - CONFUSIONAL STATE [None]
  - CONSTIPATION [None]
  - CONTUSION [None]
  - DECREASED APPETITE [None]
  - DEHYDRATION [None]
  - DYSKINESIA [None]
  - DYSPHAGIA [None]
  - ELECTROCARDIOGRAM QT PROLONGED [None]
  - ELECTROLYTE IMBALANCE [None]
  - FALL [None]
  - FATIGUE [None]
  - GAIT DISTURBANCE [None]
  - HAEMOGLOBIN DECREASED [None]
  - HALLUCINATION [None]
  - HYPERHIDROSIS [None]
  - MUCOSAL INFLAMMATION [None]
  - NEUROTOXICITY [None]
  - NEUTROPENIA [None]
  - OROPHARYNGEAL PAIN [None]
  - PLATELET COUNT DECREASED [None]
  - POSTURE ABNORMAL [None]
  - PRODUCTIVE COUGH [None]
  - PROTEIN URINE PRESENT [None]
  - SINUS TACHYCARDIA [None]
  - TREMOR [None]
  - UROBILIN URINE PRESENT [None]
  - VENTRICULAR EXTRASYSTOLES [None]
